FAERS Safety Report 9092820 (Version 2)
Quarter: 2013Q2

REPORT INFORMATION
  Report Type: Spontaneous
  Country: US (occurrence: US)
  Receive Date: 20130201
  Receipt Date: 20130619
  Transmission Date: 20140414
  Serious: Yes (Hospitalization)
  Sender: FDA-Public Use
  Company Number: US-BAYER-2013-012237

PATIENT
  Age: 42 Year
  Sex: Female

DRUGS (18)
  1. BEYAZ [Suspect]
  2. YAZ [Suspect]
  3. METHYLPREDNISOLONE [Concomitant]
     Dosage: 4 MG, TAKE AS DIRECTED
     Route: 048
     Dates: start: 20120131
  4. PROAIR HFA [Concomitant]
     Indication: DYSPNOEA
     Dosage: 108 ?G, 2 PUFFS EVERY 4 HOURS AS NEEDED
     Route: 045
     Dates: start: 20120131
  5. OMEPRAZOLE [Concomitant]
     Dosage: 20 MG, UNK
  6. LEVOFLOXACIN [Concomitant]
     Dosage: 500 MG, TAKE ONE TABLET EVERY DAY
     Route: 048
     Dates: start: 20120128
  7. OXYCODONE/APAP [Concomitant]
     Indication: PAIN
     Dosage: UNK UNK, PRN
     Route: 048
  8. PEPCID [Concomitant]
     Indication: HYPERSENSITIVITY
     Dosage: 20 MG, TAKE ONE TABLET BY MOUTH TWICE DAILY FOR 3 DAYS AS NEEDED
     Route: 048
     Dates: start: 20120128
  9. PEPCID [Concomitant]
     Indication: DYSPEPSIA
  10. PHENERGAN [Concomitant]
     Indication: NAUSEA
     Dosage: 25 MG, EVERY 6 HOURS AS NEEDED
     Route: 048
     Dates: start: 20120131
  11. POLYETHYL. GLYC. W/POTAS. CHLOR./SOD. BICARB. [Concomitant]
     Dosage: UNK
     Dates: start: 20110310
  12. PROMETHAZINE [Concomitant]
  13. CLINDAMYCIN [Concomitant]
  14. ROCEPHIN [Concomitant]
  15. SOLU MEDROL [Concomitant]
  16. LEVAQUIN [Concomitant]
  17. XOPENEX [Concomitant]
     Indication: ASTHMA
  18. DEXTROMETHORPHAN [Concomitant]

REACTIONS (2)
  - Pulmonary embolism [Recovered/Resolved]
  - Deep vein thrombosis [None]
